FAERS Safety Report 12098930 (Version 1)
Quarter: 2016Q1

REPORT INFORMATION
  Report Type: Spontaneous
  Country: US (occurrence: US)
  Receive Date: 20160222
  Receipt Date: 20160222
  Transmission Date: 20160526
  Serious: No
  Sender: FDA-Public Use
  Company Number: US-TEVA-599461USA

PATIENT
  Sex: Female
  Weight: 41.31 kg

DRUGS (1)
  1. ALENDRONIC ACID [Suspect]
     Active Substance: ALENDRONIC ACID

REACTIONS (5)
  - Candida infection [Unknown]
  - Dry mouth [Unknown]
  - Sinusitis [Unknown]
  - Memory impairment [Unknown]
  - Malaise [Unknown]
